FAERS Safety Report 9617324 (Version 2)
Quarter: 2013Q4

REPORT INFORMATION
  Report Type: Report from Study
  Country: CA (occurrence: CA)
  Receive Date: 20131011
  Receipt Date: 20131011
  Transmission Date: 20140711
  Serious: Yes (Hospitalization, Other)
  Sender: FDA-Public Use
  Company Number: CA-BRISTOL-MYERS SQUIBB COMPANY-19447317

PATIENT
  Age: 32 Year
  Sex: Female

DRUGS (6)
  1. ORENCIA [Suspect]
     Indication: RHEUMATOID ARTHRITIS
     Dosage: 1 DF : 750 UNITS NOS.
     Dates: start: 20130724
  2. MELOXICAM [Suspect]
  3. PREDNISONE [Suspect]
  4. ACTONEL [Suspect]
  5. ENBREL [Concomitant]
  6. OXYCODONE [Concomitant]

REACTIONS (2)
  - Gastric ulcer perforation [Unknown]
  - Impaired healing [Unknown]
